FAERS Safety Report 13394018 (Version 13)
Quarter: 2018Q2

REPORT INFORMATION
  Report Type: Spontaneous
  Country: US (occurrence: US)
  Receive Date: 20170331
  Receipt Date: 20180511
  Transmission Date: 20180711
  Serious: Yes (Disabling, Other)
  Sender: FDA-Public Use
  Company Number: US-BAUSCH-BL-2017-008040

PATIENT
  Age: 64 Year
  Sex: Male
  Weight: 93.98 kg

DRUGS (1)
  1. MOVIPREP [Suspect]
     Active Substance: ASCORBIC ACID\POLYETHYLENE GLYCOL 3350\POTASSIUM CHLORIDE\SODIUM ASCORBATE\SODIUM CHLORIDE\SODIUM SULFATE
     Indication: COLONOSCOPY
     Dosage: AS DIRECTED; DOSE: 8 OUNCES (240 ML)
     Route: 048
     Dates: start: 20170322, end: 20170322

REACTIONS (21)
  - Condition aggravated [Recovered/Resolved]
  - Muscle disorder [Recovered/Resolved]
  - Chondrocalcinosis pyrophosphate [Recovered/Resolved]
  - Joint swelling [Not Recovered/Not Resolved]
  - Weight decreased [Recovered/Resolved]
  - Synovial cyst [Not Recovered/Not Resolved]
  - Wheelchair user [Not Recovered/Not Resolved]
  - Hypertension [Recovered/Resolved]
  - Weight increased [Recovered/Resolved]
  - Oedema peripheral [Recovered/Resolved]
  - Feeling hot [Recovered/Resolved]
  - Amyotrophic lateral sclerosis [Recovered/Resolved]
  - Paraesthesia [Not Recovered/Not Resolved]
  - Muscle contracture [Recovered/Resolved]
  - Erythema [Not Recovered/Not Resolved]
  - Peripheral swelling [Recovered/Resolved]
  - Product label issue [Unknown]
  - Chest pain [Recovered/Resolved]
  - Precancerous cells present [Recovered/Resolved]
  - Pain in extremity [Not Recovered/Not Resolved]
  - Pain [Recovered/Resolved]

NARRATIVE: CASE EVENT DATE: 2017
